FAERS Safety Report 7515216-5 (Version None)
Quarter: 2011Q2

REPORT INFORMATION
  Report Type: 
  Country: None (occurrence: None)
  Receive Date: 20110425
  Receipt Date: 20100129
  Transmission Date: 20111010
  Serious: Yes (Other)
  Sender: FDA-Public Use
  Company Number: MC201000033

PATIENT
  Age: 48 Year
  Sex: Male

DRUGS (6)
  1. PLAVIX [Concomitant]
  2. ANGIOMAX [Suspect]
     Indication: PATENT DUCTUS ARTERIOSUS REPAIR
     Dosage: 0.75 MG/KG, BOLUS, INTRAVENOUS, 1.75 MG/KG, HR, INTRAVENOUS
     Route: 040
     Dates: start: 20100101
  3. ANGIOMAX [Suspect]
     Indication: PATENT DUCTUS ARTERIOSUS REPAIR
     Dosage: 0.75 MG/KG, BOLUS, INTRAVENOUS, 1.75 MG/KG, HR, INTRAVENOUS
     Route: 040
     Dates: start: 20100124, end: 20100124
  4. ASPIRIN [Concomitant]
  5. HEPARIN [Concomitant]
  6. INTEGRILIN [Concomitant]

REACTIONS (4)
  - COAGULATION TIME ABNORMAL [None]
  - OFF LABEL USE [None]
  - THROMBOSIS [None]
  - MYOCARDIAL INFARCTION [None]
